FAERS Safety Report 4801590-7 (Version None)
Quarter: 2005Q4

REPORT INFORMATION
  Report Type: 
  Country: None (occurrence: None)
  Receive Date: 20051011
  Receipt Date: 20051004
  Transmission Date: 20060501
  Serious: Yes (Other)
  Sender: FDA-Public Use
  Company Number: HQWYE626226SEP05

PATIENT
  Age: 32 Year
  Sex: Female
  Weight: 55.39 kg

DRUGS (4)
  1. TYGACIL [Suspect]
     Indication: MYCOBACTERIUM CHELONEI INFECTION
     Dosage: SEE IMAGE
     Route: 042
     Dates: start: 20050808, end: 20050822
  2. TYGACIL [Suspect]
     Indication: MYCOBACTERIUM CHELONEI INFECTION
     Dosage: SEE IMAGE
     Route: 042
     Dates: start: 20050830, end: 20050909
  3. BIAXIN [Concomitant]
  4. AMIKACIN [Concomitant]

REACTIONS (1)
  - PANCREATITIS [None]
